FAERS Safety Report 10129917 (Version 1)
Quarter: 2014Q2

REPORT INFORMATION
  Report Type: Spontaneous
  Country: US (occurrence: US)
  Receive Date: 20140428
  Receipt Date: 20140428
  Transmission Date: 20141212
  Serious: No
  Sender: FDA-Public Use
  Company Number: US-BAYER-2014-061917

PATIENT
  Age: 74 Year
  Sex: Male
  Weight: 65.76 kg

DRUGS (3)
  1. ALEVE CAPLET [Suspect]
     Indication: ARTHRITIS
     Dosage: 1 DF, UNK
     Route: 048
     Dates: start: 201402
  2. CAPTOPRIL [Concomitant]
     Dosage: UNK
  3. VERAPAMIL [Concomitant]
     Dosage: UNK

REACTIONS (1)
  - Drug ineffective [None]
